FAERS Safety Report 15788585 (Version 5)
Quarter: 2019Q2

REPORT INFORMATION
  Report Type: Report from Study
  Country: US (occurrence: US)
  Receive Date: 20190104
  Receipt Date: 20190524
  Transmission Date: 20190711
  Serious: Yes (Hospitalization, Other)
  Sender: FDA-Public Use
  Company Number: PHEH2019US000548

PATIENT
  Sex: Female

DRUGS (3)
  1. COSENTYX [Suspect]
     Active Substance: SECUKINUMAB
     Dosage: 150 MG, QMO (5TH LOADING DOSE)
     Route: 058
     Dates: start: 20190202
  2. COSENTYX [Suspect]
     Active Substance: SECUKINUMAB
     Dosage: 150 MG, QMO (4TH LOADING DOSE)
     Route: 058
     Dates: start: 20181222
  3. COSENTYX [Suspect]
     Active Substance: SECUKINUMAB
     Indication: PSORIATIC ARTHROPATHY
     Dosage: UNK UNK, QW
     Route: 058
     Dates: start: 201811

REACTIONS (17)
  - Dyspnoea [Not Recovered/Not Resolved]
  - Dry throat [Unknown]
  - Pain in extremity [Unknown]
  - Malaise [Unknown]
  - Cardiac disorder [Recovering/Resolving]
  - Cough [Not Recovered/Not Resolved]
  - Inflammation [Unknown]
  - Muscular weakness [Unknown]
  - Mobility decreased [Recovering/Resolving]
  - Psoriasis [Unknown]
  - Hypoxia [Unknown]
  - Bronchitis [Unknown]
  - Respiratory distress [Unknown]
  - Viral upper respiratory tract infection [Unknown]
  - Drug ineffective [Unknown]
  - Respiratory disorder [Recovered/Resolved with Sequelae]
  - Wheezing [Not Recovered/Not Resolved]
